FAERS Safety Report 13259735 (Version 1)
Quarter: 2017Q1

REPORT INFORMATION
  Report Type: Spontaneous
  Country: FR (occurrence: FR)
  Receive Date: 20170222
  Receipt Date: 20170222
  Transmission Date: 20170428
  Serious: Yes (Hospitalization)
  Sender: FDA-Public Use
  Company Number: FR-PFIZER INC-2017069360

PATIENT
  Age: 77 Year
  Sex: Male

DRUGS (4)
  1. TAHOR [Suspect]
     Active Substance: ATORVASTATIN CALCIUM
     Indication: HYPERCHOLESTEROLAEMIA
     Dosage: 10 MG, 1X/DAY
     Route: 048
     Dates: start: 20120101, end: 20161108
  2. AFINITOR [Interacting]
     Active Substance: EVEROLIMUS
     Dosage: 7.5 MG, DAILY
     Route: 048
     Dates: start: 20161108, end: 20161123
  3. ASPIRINE [Concomitant]
     Active Substance: ASPIRIN
     Dosage: UNK
  4. AFINITOR [Interacting]
     Active Substance: EVEROLIMUS
     Indication: LUNG NEOPLASM
     Dosage: 10 MG, DAILY
     Route: 048
     Dates: start: 20161025

REACTIONS (5)
  - Asthenia [Recovering/Resolving]
  - Renal failure [Recovering/Resolving]
  - Drug interaction [Recovering/Resolving]
  - Weight decreased [Recovering/Resolving]
  - Rash [Unknown]

NARRATIVE: CASE EVENT DATE: 20161026
